FAERS Safety Report 7061688-2 (Version None)
Quarter: 2010Q4

REPORT INFORMATION
  Report Type: 
  Country: None (occurrence: None)
  Receive Date: 20101026
  Receipt Date: 20101020
  Transmission Date: 20110411
  Serious: Yes (Hospitalization, Other)
  Sender: FDA-Public Use
  Company Number: JP-ASTRAZENECA-2010SE50361

PATIENT
  Age: 73 Year
  Sex: Female
  Weight: 55 kg

DRUGS (4)
  1. AMIAS [Suspect]
     Indication: CARDIAC FAILURE
     Route: 048
     Dates: start: 20091201, end: 20100903
  2. DIGOXIN [Concomitant]
     Indication: CARDIAC FAILURE
     Route: 048
     Dates: start: 20090601
  3. BISOPROLOL [Concomitant]
     Indication: CARDIAC FAILURE
     Route: 048
     Dates: start: 20090601, end: 20100601
  4. FUROSEMIDE [Concomitant]
     Indication: CARDIAC FAILURE
     Route: 048
     Dates: start: 20090601

REACTIONS (2)
  - CARDIAC DISORDER [None]
  - COUGH [None]
